FAERS Safety Report 17811433 (Version 1)
Quarter: 2020Q2

REPORT INFORMATION
  Report Type: Spontaneous
  Country: US (occurrence: US)
  Receive Date: 20200521
  Receipt Date: 20200521
  Transmission Date: 20200714
  Serious: No
  Sender: FDA-Public Use
  Company Number: US-PFIZER INC-2020200950

PATIENT
  Age: 31 Year
  Sex: Female
  Weight: 85.28 kg

DRUGS (2)
  1. VIIBRYD [Concomitant]
     Active Substance: VILAZODONE HYDROCHLORIDE
     Indication: DEPRESSION
     Dosage: UNK
  2. FLUCONAZOLE. [Suspect]
     Active Substance: FLUCONAZOLE
     Indication: FUNGAL INFECTION
     Dosage: 150 MG (150 MG ONE TIME DOSE)

REACTIONS (7)
  - Eye swelling [Recovered/Resolved]
  - Eye disorder [Recovered/Resolved]
  - Lip scab [Recovered/Resolved]
  - Scab [Recovered/Resolved]
  - Vulvovaginal pruritus [Recovered/Resolved]
  - Lip blister [Recovered/Resolved]
  - Lip swelling [Recovered/Resolved]

NARRATIVE: CASE EVENT DATE: 201911
